FAERS Safety Report 19437690 (Version 1)
Quarter: 2021Q2

REPORT INFORMATION
  Report Type: Spontaneous
  Country: US (occurrence: US)
  Receive Date: 20210618
  Receipt Date: 20210618
  Transmission Date: 20210717
  Serious: Yes (Other)
  Sender: FDA-Public Use
  Company Number: US-ELI_LILLY_AND_COMPANY-US202106006430

PATIENT
  Sex: Female
  Weight: 56.8 kg

DRUGS (2)
  1. MACITENTAN [Suspect]
     Active Substance: MACITENTAN
     Indication: PULMONARY ARTERIAL HYPERTENSION
     Dosage: 10 MG, DAILY
     Route: 048
  2. ADCIRCA [Suspect]
     Active Substance: TADALAFIL
     Indication: PULMONARY ARTERIAL HYPERTENSION
     Dosage: 1 DOSAGE FORM, DAILY
     Route: 065

REACTIONS (6)
  - Dizziness [Unknown]
  - Asthenia [Unknown]
  - Fall [Unknown]
  - Feeling abnormal [Unknown]
  - Upper-airway cough syndrome [Unknown]
  - Sinusitis [Unknown]
